FAERS Safety Report 5025650-3 (Version None)
Quarter: 2006Q2

REPORT INFORMATION
  Report Type: 
  Country: None (occurrence: None)
  Receive Date: 20060614
  Receipt Date: 20060605
  Transmission Date: 20061013
  Serious: Yes (Other)
  Sender: FDA-Public Use
  Company Number: PHEH2006US07327

PATIENT
  Age: 54 Year
  Sex: Male

DRUGS (4)
  1. ZOMETA [Suspect]
     Indication: METASTASES TO BONE
     Dosage: 4MG Q28DAYS
     Dates: start: 20050420
  2. ZOMETA [Suspect]
     Dosage: 4MG Q28DAYS
     Dates: end: 20060518
  3. DECADRON [Concomitant]
     Dosage: 4MG BID FOR 3 DAYS
     Dates: start: 20060210, end: 20060526
  4. TAXOTERE [Concomitant]
     Indication: PROSTATE CANCER
     Dosage: 75MG/M2 Q21D
     Dates: start: 20060210, end: 20060526

REACTIONS (7)
  - BONE DEBRIDEMENT [None]
  - BONE DISORDER [None]
  - GINGIVAL PAIN [None]
  - GINGIVAL SWELLING [None]
  - OSTEONECROSIS [None]
  - PAIN [None]
  - TOOTH EXTRACTION [None]
